FAERS Safety Report 10943927 (Version 1)
Quarter: 2015Q1

REPORT INFORMATION
  Report Type: Spontaneous
  Country: SE (occurrence: SE)
  Receive Date: 20150323
  Receipt Date: 20150323
  Transmission Date: 20150721
  Serious: Yes (Death)
  Sender: FDA-Public Use
  Company Number: SE-UCBSA-2015008370

PATIENT
  Age: 32 Year
  Sex: Male
  Weight: 85 kg

DRUGS (2)
  1. CIMZIA [Suspect]
     Active Substance: CERTOLIZUMAB PEGOL
     Indication: ARTHRALGIA
  2. CIMZIA [Suspect]
     Active Substance: CERTOLIZUMAB PEGOL
     Indication: BACK PAIN
     Dosage: UNK
     Route: 058
     Dates: start: 2013, end: 201308

REACTIONS (4)
  - Small intestine carcinoma [Fatal]
  - Malignant peritoneal neoplasm [Fatal]
  - Pain [Fatal]
  - Hepatic cancer [Fatal]

NARRATIVE: CASE EVENT DATE: 201303
